FAERS Safety Report 9376120 (Version 1)
Quarter: 2013Q2

REPORT INFORMATION
  Report Type: Spontaneous
  Country: GB (occurrence: GB)
  Receive Date: 20130630
  Receipt Date: 20130630
  Transmission Date: 20140414
  Serious: Yes (Other)
  Sender: FDA-Public Use
  Company Number: GB-TEVA-414610ISR

PATIENT
  Age: 61 Year
  Sex: Male
  Weight: 83 kg

DRUGS (3)
  1. TEVA UK ATORVASTATIN [Suspect]
     Indication: HYPERLIPIDAEMIA
     Route: 048
     Dates: start: 20130509, end: 20130526
  2. OMEGA-3 ACIDS [Concomitant]
  3. LORATADINE [Concomitant]

REACTIONS (3)
  - Arrhythmia [Recovered/Resolved]
  - Nightmare [Recovered/Resolved]
  - Fatigue [Recovered/Resolved]
